FAERS Safety Report 8165699-5 (Version None)
Quarter: 2012Q1

REPORT INFORMATION
  Report Type: 
  Country: None (occurrence: None)
  Receive Date: 20120223
  Receipt Date: 20120223
  Transmission Date: 20120608
  Serious: Yes (Hospitalization)
  Sender: FDA-Public Use
  Company Number: None

PATIENT
  Sex: Male
  Weight: 21.5 kg

DRUGS (3)
  1. CYTARABINE [Suspect]
     Dosage: 5400 MG
     Dates: end: 20120205
  2. MITOXANTRONE HYDROCHLORIDE [Suspect]
     Dosage: 18 MG
     Dates: end: 20120206
  3. TRETINOIN [Suspect]
     Dosage: 280 MG
     Dates: end: 20120216

REACTIONS (5)
  - PYREXIA [None]
  - PLATELET COUNT DECREASED [None]
  - HEADACHE [None]
  - BACILLUS TEST POSITIVE [None]
  - NEUTROPHIL COUNT DECREASED [None]
